FAERS Safety Report 12619491 (Version 3)
Quarter: 2016Q3

REPORT INFORMATION
  Report Type: Spontaneous
  Country: US (occurrence: US)
  Receive Date: 20160803
  Receipt Date: 20160824
  Transmission Date: 20161109
  Serious: No
  Sender: FDA-Public Use
  Company Number: US-PFIZER INC-2016371098

PATIENT
  Age: 64 Year
  Sex: Female
  Weight: 95.24 kg

DRUGS (1)
  1. IBRANCE [Suspect]
     Active Substance: PALBOCICLIB
     Indication: BREAST CANCER METASTATIC
     Dosage: 125 MG, CYCLIC (D1-D21 Q28D)
     Route: 048
     Dates: start: 20160115

REACTIONS (2)
  - Essential tremor [Unknown]
  - Tremor [Unknown]
